FAERS Safety Report 5286844-5 (Version None)
Quarter: 2007Q2

REPORT INFORMATION
  Report Type: 
  Country: None (occurrence: None)
  Receive Date: 20070404
  Receipt Date: 20070328
  Transmission Date: 20071010
  Serious: Yes (Hospitalization)
  Sender: FDA-Public Use
  Company Number: US-BOEHRINGER INGELHEIM PHARMACEUTICALS, INC.-2007-BP-00054BP

PATIENT
  Sex: Male
  Weight: 84 kg

DRUGS (1)
  1. FLOMAX [Suspect]
     Indication: BENIGN PROSTATIC HYPERPLASIA
     Route: 048
     Dates: start: 20061228, end: 20061229

REACTIONS (7)
  - APHASIA [None]
  - DIZZINESS [None]
  - DYSARTHRIA [None]
  - HYPOKALAEMIA [None]
  - MICTURITION DISORDER [None]
  - SENSORY LOSS [None]
  - VERTIGO [None]
